FAERS Safety Report 9847036 (Version 1)
Quarter: 2014Q1

REPORT INFORMATION
  Report Type: Spontaneous
  Country: US (occurrence: US)
  Receive Date: 20140127
  Receipt Date: 20140127
  Transmission Date: 20141002
  Serious: No
  Sender: FDA-Public Use
  Company Number: US-TEVA-457923USA

PATIENT
  Age: 52 Year
  Sex: Female
  Weight: 59.47 kg

DRUGS (4)
  1. PROAIR HFA [Suspect]
     Indication: BRONCHITIS
  2. AZITHROMYCIN [Concomitant]
     Indication: ANTIBIOTIC THERAPY
  3. PHENERGAN W/DEXTROMETHORPHAN [Concomitant]
     Indication: COUGH
  4. TOPROL XL [Concomitant]
     Indication: BLOOD PRESSURE INCREASED

REACTIONS (4)
  - Hearing impaired [Not Recovered/Not Resolved]
  - Tinnitus [Not Recovered/Not Resolved]
  - Balance disorder [Not Recovered/Not Resolved]
  - Dizziness [Not Recovered/Not Resolved]
